FAERS Safety Report 6772511-5 (Version None)
Quarter: 2010Q2

REPORT INFORMATION
  Report Type: 
  Country: None (occurrence: None)
  Receive Date: 20100616
  Receipt Date: 20090908
  Transmission Date: 20101027
  Serious: No
  Sender: FDA-Public Use
  Company Number: US-ASTRAZENECA-2009SE12069

PATIENT
  Age: 78 Year
  Sex: Female

DRUGS (3)
  1. PULMICORT RESPULES [Suspect]
     Indication: CHRONIC OBSTRUCTIVE PULMONARY DISEASE
     Route: 055
     Dates: start: 20040101
  2. BONIVA [Concomitant]
  3. ALBUTEROL [Concomitant]

REACTIONS (2)
  - ABNORMAL SENSATION IN EYE [None]
  - ORAL DISORDER [None]
